FAERS Safety Report 6821676-5 (Version None)
Quarter: 2010Q3

REPORT INFORMATION
  Report Type: 
  Country: None (occurrence: None)
  Receive Date: 20100707
  Receipt Date: 20090524
  Transmission Date: 20110219
  Serious: No
  Sender: FDA-Public Use
  Company Number: US-PFIZER INC-2009192746

PATIENT

DRUGS (1)
  1. ZOLOFT [Suspect]
     Dosage: UNK

REACTIONS (4)
  - DRUG LABEL CONFUSION [None]
  - FATIGUE [None]
  - WEIGHT INCREASED [None]
  - WITHDRAWAL SYNDROME [None]
